FAERS Safety Report 4664078-2 (Version None)
Quarter: 2005Q2

REPORT INFORMATION
  Report Type: 
  Country: None (occurrence: None)
  Receive Date: 20050516
  Receipt Date: 20050516
  Transmission Date: 20051028
  Serious: No
  Sender: FDA-Public Use
  Company Number: None

PATIENT
  Age: 40 Year
  Sex: Female
  Weight: 57.1532 kg

DRUGS (6)
  1. SYNTHROID [Suspect]
     Indication: HYPOTHYROIDISM
     Dosage: 100 MCG     ONCE/DAY   ORAL
     Route: 048
     Dates: start: 20041214, end: 20050515
  2. LECITHIN [Concomitant]
  3. QUERCETIN W/BROMELAIN + ESTER-C [Concomitant]
  4. GARLIC [Concomitant]
  5. ZINC W/ COPPER [Concomitant]
  6. MODUCARE [Concomitant]

REACTIONS (11)
  - ARTHRALGIA [None]
  - DYSGEUSIA [None]
  - FATIGUE [None]
  - FEELING COLD [None]
  - FUNGAL INFECTION [None]
  - HYPOTHYROIDISM [None]
  - IRRITABILITY [None]
  - MEDICATION ERROR [None]
  - MYALGIA [None]
  - PHARMACEUTICAL PRODUCT COMPLAINT [None]
  - TRI-IODOTHYRONINE DECREASED [None]
